FAERS Safety Report 14608379 (Version 1)
Quarter: 2018Q1

REPORT INFORMATION
  Report Type: Spontaneous
  Country: GB (occurrence: GB)
  Receive Date: 20180307
  Receipt Date: 20180307
  Transmission Date: 20180509
  Serious: Yes (Other)
  Sender: FDA-Public Use
  Company Number: GB-JNJFOC-20180235147

PATIENT
  Age: 8 Month
  Sex: Female
  Weight: 8.15 kg

DRUGS (2)
  1. CALPOL [Suspect]
     Active Substance: ACETAMINOPHEN
     Indication: PYREXIA
     Dosage: 2.5 TO 5 ML
     Route: 048
     Dates: start: 20171102, end: 20171103
  2. CALPOL [Suspect]
     Active Substance: ACETAMINOPHEN
     Route: 048

REACTIONS (4)
  - Erythema [Recovering/Resolving]
  - Irritability [Recovering/Resolving]
  - Urine output decreased [Recovering/Resolving]
  - Urticaria [Recovering/Resolving]
